FAERS Safety Report 7469564-8 (Version None)
Quarter: 2011Q2

REPORT INFORMATION
  Report Type: 
  Country: None (occurrence: None)
  Receive Date: 20110510
  Receipt Date: 20110505
  Transmission Date: 20111010
  Serious: Yes (Death, Other)
  Sender: FDA-Public Use
  Company Number: PHEH2008US06284

PATIENT
  Sex: Female

DRUGS (1)
  1. ZOMETA [Suspect]

REACTIONS (19)
  - DISEASE PROGRESSION [None]
  - HYPOAESTHESIA [None]
  - HAEMORRHAGE [None]
  - PSEUDOEPITHELIOMATOUS HYPERPLASIA [None]
  - IMPAIRED HEALING [None]
  - INFECTION [None]
  - INFLAMMATION [None]
  - NEOPLASM MALIGNANT [None]
  - SCAR [None]
  - INJURY [None]
  - EXPOSED BONE IN JAW [None]
  - OSTEONECROSIS OF JAW [None]
  - OSTEOMYELITIS [None]
  - SWELLING [None]
  - ANXIETY [None]
  - PAIN IN JAW [None]
  - ALVEOLAR OSTEITIS [None]
  - EXCESSIVE GRANULATION TISSUE [None]
  - GIANT CELL EPULIS [None]
